FAERS Safety Report 7809134-2 (Version None)
Quarter: 2011Q4

REPORT INFORMATION
  Report Type: 
  Country: None (occurrence: None)
  Receive Date: 20111012
  Receipt Date: 20111004
  Transmission Date: 20120403
  Serious: Yes (Other)
  Sender: FDA-Public Use
  Company Number: US-JNJFOC-20111002620

PATIENT
  Sex: Female
  Weight: 74.39 kg

DRUGS (9)
  1. DURAGESIC-100 [Suspect]
     Route: 062
  2. BENAZEPRIL HYDROCHLORIDE [Concomitant]
     Indication: BLOOD PRESSURE
     Dosage: IN AM
     Route: 048
  3. DURAGESIC-100 [Suspect]
     Route: 062
     Dates: start: 20101001
  4. LYRICA [Concomitant]
     Indication: FIBROMYALGIA
     Route: 048
     Dates: start: 20090101
  5. VITAMINS NOS [Concomitant]
     Indication: NUTRITIONAL SUPPORT
     Route: 048
  6. SYNTHROID [Concomitant]
     Indication: THYROID DISORDER
     Route: 048
     Dates: start: 19840101
  7. EFFEXOR [Concomitant]
     Indication: DEPRESSION
     Dosage: EVERY OTHER NIGHT
     Route: 048
     Dates: start: 20090101
  8. XANAX [Concomitant]
     Indication: POST-TRAUMATIC STRESS DISORDER
     Dosage: AT BEDTIME
     Route: 048
     Dates: start: 20090101
  9. DURAGESIC-100 [Suspect]
     Indication: BACK PAIN
     Route: 062

REACTIONS (6)
  - SOMNOLENCE [None]
  - ADVERSE EVENT [None]
  - INSOMNIA [None]
  - INFLAMMATION [None]
  - PRODUCT QUALITY ISSUE [None]
  - EXERCISE TOLERANCE DECREASED [None]
